FAERS Safety Report 17498560 (Version 2)
Quarter: 2020Q1

REPORT INFORMATION
  Report Type: Spontaneous
  Country: FR (occurrence: FR)
  Receive Date: 20200304
  Receipt Date: 20200319
  Transmission Date: 20200409
  Serious: Yes (Hospitalization)
  Sender: FDA-Public Use
  Company Number: FR-MYLANLABS-2020M1023259

PATIENT
  Sex: Male
  Weight: 145 kg

DRUGS (8)
  1. LEVOTHYROX [Concomitant]
     Active Substance: LEVOTHYROXINE
     Indication: PRODUCT USED FOR UNKNOWN INDICATION
     Dosage: UNK
     Route: 065
  2. INSULIN [Concomitant]
     Active Substance: INSULIN NOS
     Indication: PRODUCT USED FOR UNKNOWN INDICATION
     Dosage: UNK
     Route: 065
  3. ABILIFY [Suspect]
     Active Substance: ARIPIPRAZOLE
     Indication: OBSESSIVE-COMPULSIVE DISORDER
     Dosage: 5 MILLIGRAM, QD(5 MG, QD (IN THE EVENING))
     Route: 048
     Dates: start: 2000
  4. MONOPROST [Concomitant]
     Active Substance: LATANOPROST
     Indication: PRODUCT USED FOR UNKNOWN INDICATION
     Dosage: UNK
     Route: 065
  5. SEROPLEX [Concomitant]
     Active Substance: ESCITALOPRAM OXALATE
     Indication: PRODUCT USED FOR UNKNOWN INDICATION
     Dosage: UNK
     Route: 065
  6. ARIPIPRAZOLE. [Suspect]
     Active Substance: ARIPIPRAZOLE
     Indication: PRODUCT USED FOR UNKNOWN INDICATION
     Dosage: UNK
     Route: 065
  7. GLIMEPIRIDE. [Concomitant]
     Active Substance: GLIMEPIRIDE
     Indication: PRODUCT USED FOR UNKNOWN INDICATION
     Dosage: UNK
     Route: 065
  8. METFORMIN [Concomitant]
     Active Substance: METFORMIN HYDROCHLORIDE
     Indication: PRODUCT USED FOR UNKNOWN INDICATION
     Dosage: UNK
     Route: 065

REACTIONS (14)
  - Skin disorder [Not Recovered/Not Resolved]
  - Neurotransmitter level altered [Unknown]
  - Obsessive-compulsive disorder [Unknown]
  - Weight increased [Not Recovered/Not Resolved]
  - Rheumatic disorder [Unknown]
  - Diabetes mellitus [Not Recovered/Not Resolved]
  - Product use in unapproved indication [Unknown]
  - Food craving [Unknown]
  - Blood iron abnormal [Unknown]
  - Blood thyroid stimulating hormone abnormal [Unknown]
  - Neuropathy peripheral [Unknown]
  - Diabetic neuropathy [Unknown]
  - Serum serotonin decreased [Unknown]
  - Mental fatigue [Unknown]

NARRATIVE: CASE EVENT DATE: 2000
